FAERS Safety Report 7574454-6 (Version None)
Quarter: 2011Q2

REPORT INFORMATION
  Report Type: 
  Country: None (occurrence: None)
  Receive Date: 20110627
  Receipt Date: 20110614
  Transmission Date: 20111010
  Serious: Yes (Other)
  Sender: FDA-Public Use
  Company Number: US-BAYER-2011-041407

PATIENT
  Age: 48 Year
  Sex: Male

DRUGS (8)
  1. PERPHENAZINE [Concomitant]
  2. NORTRIPTYLINE HYDROCHLORIDE [Concomitant]
  3. BETASERON [Suspect]
     Indication: MULTIPLE SCLEROSIS
     Dosage: 8 MIU, QOD
     Route: 058
     Dates: start: 20080320, end: 20080424
  4. BETASERON [Suspect]
     Dosage: 8 MIU, QOD
     Route: 058
     Dates: start: 20080521
  5. MIRTAZAPINE [Concomitant]
  6. CORTICOSTEROIDS [Concomitant]
     Dosage: UNK UNK, Q1MON
     Route: 042
  7. XANAX [Concomitant]
  8. TRAZODONE HCL [Concomitant]

REACTIONS (8)
  - INJECTION SITE PAIN [None]
  - INJECTION SITE INFECTION [None]
  - ARTHRALGIA [None]
  - ABDOMINAL PAIN UPPER [None]
  - NAUSEA [None]
  - MYALGIA [None]
  - WEIGHT DECREASED [None]
  - PAIN [None]
